FAERS Safety Report 9067546 (Version 1)
Quarter: 2013Q1

REPORT INFORMATION
  Report Type: Report from Study
  Country: US (occurrence: US)
  Receive Date: 20130131
  Receipt Date: 20130131
  Transmission Date: 20140127
  Serious: No
  Sender: FDA-Public Use
  Company Number: US-ABBOTT-12P-163-1007974-00

PATIENT
  Age: 50 Year
  Sex: Female

DRUGS (13)
  1. HUMIRA [Suspect]
     Indication: RHEUMATOID ARTHRITIS
  2. ARTHROTEC [Concomitant]
     Indication: RHEUMATOID ARTHRITIS
     Dosage: 75MG/200MCG TABLET
  3. AMBIEN [Concomitant]
     Indication: SLEEP DISORDER
  4. NEXIUM [Concomitant]
     Indication: GASTROOESOPHAGEAL REFLUX DISEASE
  5. HYDROCODONE [Concomitant]
     Indication: PAIN
     Dosage: 10/325MG EVERY DAY UP TO QID
  6. DISTOLIC [Concomitant]
     Indication: HYPERTENSION
  7. CARAFATE [Concomitant]
     Indication: HIATUS HERNIA
  8. XANAX [Concomitant]
     Indication: ANXIETY
  9. TRAZODONE [Concomitant]
     Indication: DEPRESSION
  10. EFFEXOR [Concomitant]
     Indication: DEPRESSION
  11. PROGESTERONE [Concomitant]
     Indication: HORMONE REPLACEMENT THERAPY
  12. VIVELLE [Concomitant]
     Indication: HORMONE REPLACEMENT THERAPY
     Route: 062
  13. ESTRACE [Concomitant]
     Route: 067

REACTIONS (4)
  - Dizziness [Unknown]
  - Back pain [Not Recovered/Not Resolved]
  - Pain in extremity [Not Recovered/Not Resolved]
  - Local swelling [Not Recovered/Not Resolved]
